FAERS Safety Report 24462056 (Version 1)
Quarter: 2024Q4

REPORT INFORMATION
  Report Type: Spontaneous
  Country: CN (occurrence: CN)
  Receive Date: 20241018
  Receipt Date: 20241018
  Transmission Date: 20250115
  Serious: No
  Sender: ROCHE
  Company Number: CN-ROCHE-3567580

PATIENT
  Age: 41 Year
  Sex: Female
  Weight: 54.0 kg

DRUGS (3)
  1. MABTHERA [Suspect]
     Active Substance: RITUXIMAB
     Indication: Non-Hodgkin^s lymphoma
     Route: 041
     Dates: start: 20231017, end: 20231018
  2. MABTHERA [Suspect]
     Active Substance: RITUXIMAB
     Route: 041
     Dates: start: 20231018, end: 20231018
  3. THALIDOMIDE [Concomitant]
     Active Substance: THALIDOMIDE
     Indication: Non-Hodgkin^s lymphoma
     Dates: start: 20231017

REACTIONS (1)
  - Pyrexia [Recovering/Resolving]

NARRATIVE: CASE EVENT DATE: 20231017
